FAERS Safety Report 8540663-2 (Version None)
Quarter: 2012Q3

REPORT INFORMATION
  Report Type: 
  Country: None (occurrence: None)
  Receive Date: 20120726
  Receipt Date: 20120720
  Transmission Date: 20120928
  Serious: No
  Sender: FDA-Public Use
  Company Number: US-B.I. PHARMACEUTICALS,INC./RIDGEFIELD-2012-BP-16316BP

PATIENT
  Sex: Female
  Weight: 40 kg

DRUGS (7)
  1. CLOBETASOL PROPIONATE [Concomitant]
     Indication: PSORIASIS
  2. SPIRIVA [Suspect]
     Indication: CHRONIC OBSTRUCTIVE PULMONARY DISEASE
     Dosage: 18 MCG
     Route: 055
     Dates: start: 20120703
  3. HYDROCHLOROTHIAZIDE [Concomitant]
  4. PROVERA [Concomitant]
  5. RETIN-A [Concomitant]
     Indication: ROUTINE HEALTH MAINTENANCE
  6. APRESOLINE [Concomitant]
  7. PREMARIN [Concomitant]

REACTIONS (3)
  - PRODUCTIVE COUGH [None]
  - WEIGHT DECREASED [None]
  - COUGH [None]
